FAERS Safety Report 24679748 (Version 1)
Quarter: 2024Q4

REPORT INFORMATION
  Report Type: Spontaneous
  Country: US (occurrence: US)
  Receive Date: 20241129
  Receipt Date: 20241129
  Transmission Date: 20250115
  Serious: Yes (Other)
  Sender: MERCK
  Company Number: US-009507513-2411USA006742

PATIENT
  Age: 61 Year
  Sex: Male

DRUGS (1)
  1. WINREVAIR [Suspect]
     Active Substance: SOTATERCEPT-CSRK
     Indication: Pulmonary arterial hypertension
     Dosage: 0.7 MILLIGRAM/KILOGRAM
     Route: 058
     Dates: start: 20240612

REACTIONS (1)
  - Pulmonary arteriovenous fistula [Unknown]

NARRATIVE: CASE EVENT DATE: 20240101
